FAERS Safety Report 4528032-3 (Version None)
Quarter: 2004Q4

REPORT INFORMATION
  Report Type: 
  Country: None (occurrence: None)
  Receive Date: 20041123
  Receipt Date: 20040415
  Transmission Date: 20050328
  Serious: Yes (Other)
  Sender: FDA-Public Use
  Company Number: 2004026054

PATIENT
  Sex: Female

DRUGS (4)
  1. LIPITOR [Suspect]
     Indication: BLOOD CHOLESTEROL INCREASED
     Dosage: 10 MG (DAILY), ORAL
     Route: 048
     Dates: start: 20031101, end: 20040414
  2. FLUTICASONE PROPIONATE [Suspect]
     Indication: ILL-DEFINED DISORDER
     Dates: end: 20040301
  3. SALMETEROL XINAFOATE (SALMETEROL XINAFOATE) [Concomitant]
  4. FLUTICASONE PROPIONATE [Concomitant]

REACTIONS (2)
  - CANDIDIASIS [None]
  - GLOSSITIS [None]
